FAERS Safety Report 9248086 (Version 1)
Quarter: 2013Q2

REPORT INFORMATION
  Report Type: Spontaneous
  Country: US (occurrence: IL)
  Receive Date: 20130423
  Receipt Date: 20130423
  Transmission Date: 20140414
  Serious: No
  Sender: FDA-Public Use
  Company Number: US-PFIZER INC-2013124102

PATIENT
  Age: 58 Year
  Sex: Male

DRUGS (3)
  1. LYRICA [Suspect]
     Indication: DIABETIC NEPHROPATHY
     Dosage: 25 MG, 1X/DAY
     Route: 048
     Dates: start: 20130411
  2. LYRICA [Suspect]
     Dosage: 75 MG, 2X/DAY
     Dates: start: 201304
  3. INSULIN [Concomitant]
     Indication: DIABETES MELLITUS
     Dosage: UNK

REACTIONS (3)
  - Drug ineffective [Not Recovered/Not Resolved]
  - Malaise [Not Recovered/Not Resolved]
  - Frustration [Unknown]
